FAERS Safety Report 19874593 (Version 1)
Quarter: 2021Q3

REPORT INFORMATION
  Report Type: Spontaneous
  Country: CA (occurrence: CA)
  Receive Date: 20210922
  Receipt Date: 20210922
  Transmission Date: 20211014
  Serious: Yes (Other)
  Sender: FDA-Public Use
  Company Number: CA-ANIPHARMA-2021-CA-001423

PATIENT
  Age: 66 Year
  Sex: Male
  Weight: 84 kg

DRUGS (5)
  1. CANDESARTAN CILEXETIL. [Suspect]
     Active Substance: CANDESARTAN CILEXETIL
     Indication: HYPERTENSION
     Dosage: 8 MG DAILY / 1 DF DAILY
     Route: 048
  2. AMLODIPINE [Concomitant]
     Active Substance: AMLODIPINE BESYLATE
     Route: 065
  3. OMEPRAZOLE MAGNESIUM. [Concomitant]
     Active Substance: OMEPRAZOLE MAGNESIUM
     Route: 065
  4. METFORMIN [Concomitant]
     Active Substance: METFORMIN HYDROCHLORIDE
     Route: 065
  5. ROSUVASTATIN. [Concomitant]
     Active Substance: ROSUVASTATIN
     Route: 065

REACTIONS (1)
  - Joint swelling [Unknown]
